FAERS Safety Report 6845539-4 (Version None)
Quarter: 2010Q3

REPORT INFORMATION
  Report Type: 
  Country: None (occurrence: None)
  Receive Date: 20100715
  Receipt Date: 20070820
  Transmission Date: 20110219
  Serious: No
  Sender: FDA-Public Use
  Company Number: US-PFIZER INC-2007072378

PATIENT
  Sex: Male
  Weight: 90.7 kg

DRUGS (4)
  1. CHANTIX [Suspect]
     Indication: EX-TOBACCO USER
     Dates: start: 20070601
  2. LISINOPRIL [Concomitant]
  3. TRIAMTERENE [Concomitant]
  4. PROTONIX [Concomitant]

REACTIONS (6)
  - DEPRESSION [None]
  - FEELING ABNORMAL [None]
  - INCORRECT DOSE ADMINISTERED [None]
  - MALAISE [None]
  - NAUSEA [None]
  - SOMNOLENCE [None]
